FAERS Safety Report 19028033 (Version 1)
Quarter: 2021Q1

REPORT INFORMATION
  Report Type: Report from Study
  Country: None (occurrence: US)
  Receive Date: 20210319
  Receipt Date: 20210319
  Transmission Date: 20210420
  Serious: Yes (Other)
  Sender: FDA-Public Use
  Company Number: US-ABBVIE-21K-163-3819490-00

PATIENT
  Age: 66 Year
  Sex: Male

DRUGS (1)
  1. IMBRUVICA [Suspect]
     Active Substance: IBRUTINIB
     Indication: MANTLE CELL LYMPHOMA
     Route: 048

REACTIONS (5)
  - Influenza like illness [Unknown]
  - Troponin increased [Unknown]
  - Skin laceration [Unknown]
  - White blood cell count increased [Unknown]
  - Fibrin D dimer increased [Unknown]

NARRATIVE: CASE EVENT DATE: 20210211
